FAERS Safety Report 24094079 (Version 4)
Quarter: 2024Q3

REPORT INFORMATION
  Report Type: Spontaneous
  Country: US (occurrence: US)
  Receive Date: 20240716
  Receipt Date: 20240920
  Transmission Date: 20241016
  Serious: No
  Sender: ALKERMES
  Company Number: US-ALKERMES INC.-ALK-2024-001840

PATIENT
  Sex: Male
  Weight: 86.168 kg

DRUGS (12)
  1. VIVITROL [Suspect]
     Active Substance: NALTREXONE
     Indication: Alcohol abuse
     Dosage: 380 MILLIGRAM, Q28D
     Route: 030
     Dates: start: 20240521
  2. DEXAMETHASONE\TOBRAMYCIN [Concomitant]
     Active Substance: DEXAMETHASONE\TOBRAMYCIN
     Indication: Product used for unknown indication
     Dosage: 0.3 TO 0.1 PERCENT, 1 DROP INTO EACH EYE, QID
     Route: 047
  3. TOBRADEX [Concomitant]
     Active Substance: DEXAMETHASONE\TOBRAMYCIN
     Indication: Product used for unknown indication
     Dosage: 0.3 TO 0.1  PERCENT
     Route: 047
  4. BAQSIMI [Concomitant]
     Active Substance: GLUCAGON
     Indication: Product used for unknown indication
     Dosage: 3 MILLIGRAM AS DIRECTED
     Route: 045
  5. GABAPENTIN [Concomitant]
     Active Substance: GABAPENTIN
     Indication: Product used for unknown indication
     Dosage: 300 MILLIGRAM, 2 CAPSULES, TID
     Route: 048
  6. ARIPIPRAZOLE [Concomitant]
     Active Substance: ARIPIPRAZOLE
     Indication: Product used for unknown indication
     Dosage: 2 MILLIGRAM, QD, 1 TABLET
     Route: 048
  7. VENLAFAXINE [Concomitant]
     Active Substance: VENLAFAXINE HYDROCHLORIDE
     Indication: Product used for unknown indication
     Dosage: 37.5 MILLIGRAM, QD, WITH FOOD
     Route: 048
  8. TOUJEO [Concomitant]
     Active Substance: INSULIN GLARGINE
     Indication: Product used for unknown indication
     Dosage: 300 INTERNATIONAL UNIT PER MILLILITRE
     Route: 058
  9. LYUMJEV [Concomitant]
     Active Substance: INSULIN LISPRO-AABC
     Indication: Product used for unknown indication
     Dosage: 100 INTERNATIONAL UNIT PER MILLILITRE
     Route: 065
  10. ONDANSETRON [Concomitant]
     Active Substance: ONDANSETRON
     Indication: Product used for unknown indication
     Dosage: 4 MILLIGRAM, Q6H, PRN
     Route: 060
  11. LOSARTAN POTASSIUM [Concomitant]
     Active Substance: LOSARTAN POTASSIUM
     Indication: Product used for unknown indication
     Dosage: 100 MILLIGRAM, QD
     Route: 048
  12. DESCOVY [Concomitant]
     Active Substance: EMTRICITABINE\TENOFOVIR ALAFENAMIDE FUMARATE
     Indication: Product used for unknown indication
     Dosage: 200 TO 25 MILLIGRAM, QD
     Route: 048

REACTIONS (6)
  - Glycosylated haemoglobin increased [Unknown]
  - Low density lipoprotein increased [Unknown]
  - Nausea [Recovered/Resolved]
  - Vomiting [Recovered/Resolved]
  - Injection site pain [Unknown]
  - Decreased appetite [Unknown]

NARRATIVE: CASE EVENT DATE: 20240101
